FAERS Safety Report 12341077 (Version 1)
Quarter: 2016Q2

REPORT INFORMATION
  Report Type: Spontaneous
  Country: US (occurrence: None)
  Receive Date: 20160505
  Receipt Date: 20160505
  Transmission Date: 20160815
  Serious: Yes (Other)
  Sender: FDA-Public Use
  Company Number: None

PATIENT
  Age: 84 Year
  Sex: Male
  Weight: 87.3 kg

DRUGS (2)
  1. HYDRALAZINE [Suspect]
     Active Substance: HYDRALAZINE HYDROCHLORIDE
     Indication: HYPERTENSION
     Route: 042
     Dates: start: 20160310, end: 20160310
  2. MAGNESIUM SULFATE. [Suspect]
     Active Substance: MAGNESIUM SULFATE
     Indication: HEADACHE
     Route: 042
     Dates: start: 20160310, end: 20160310

REACTIONS (4)
  - Nausea [None]
  - Flushing [None]
  - Hypertension [None]
  - Vomiting [None]

NARRATIVE: CASE EVENT DATE: 20160309
